FAERS Safety Report 19847086 (Version 1)
Quarter: 2021Q3

REPORT INFORMATION
  Report Type: Spontaneous
  Country: GB (occurrence: GB)
  Receive Date: 20210917
  Receipt Date: 20210917
  Transmission Date: 20211014
  Serious: Yes (Other)
  Sender: FDA-Public Use
  Company Number: GB-ASTRAZENECA-2021A722609

PATIENT
  Age: 85 Year
  Sex: Male
  Weight: 66.7 kg

DRUGS (15)
  1. COTRIMOXAZOLE [Concomitant]
     Active Substance: SULFAMETHOXAZOLE\TRIMETHOPRIM
  2. ASPIRIN. [Concomitant]
     Active Substance: ASPIRIN
  3. ATORVASTATIN [Concomitant]
     Active Substance: ATORVASTATIN
  4. CLOPIDOGREL [Concomitant]
     Active Substance: CLOPIDOGREL BISULFATE
  5. EPLERENONE. [Concomitant]
     Active Substance: EPLERENONE
  6. LINAGLIPTIN [Concomitant]
     Active Substance: LINAGLIPTIN
  7. MORPHINE [Concomitant]
     Active Substance: MORPHINE
     Dosage: 5.0DF UNKNOWN
  8. FAMOTIDINE. [Concomitant]
     Active Substance: FAMOTIDINE
  9. LANSOPRAZOLE. [Concomitant]
     Active Substance: LANSOPRAZOLE
  10. DAPAGLIFLOZIN. [Suspect]
     Active Substance: DAPAGLIFLOZIN
     Indication: CARDIAC FAILURE
     Route: 048
     Dates: start: 20210628, end: 20210818
  11. DAPAGLIFLOZIN. [Suspect]
     Active Substance: DAPAGLIFLOZIN
     Indication: CARDIAC FAILURE
     Route: 048
     Dates: start: 20210901, end: 20210908
  12. BISOPROLOL [Concomitant]
     Active Substance: BISOPROLOL
  13. FUROSEMIDE. [Concomitant]
     Active Substance: FUROSEMIDE
  14. ERTAPENEM. [Concomitant]
     Active Substance: ERTAPENEM SODIUM
  15. VALSARTAN/SACUBITRIL [Concomitant]
     Active Substance: SACUBITRIL\VALSARTAN
     Dosage: 24/26MG

REACTIONS (5)
  - Livedo reticularis [Unknown]
  - Biliary sepsis [Unknown]
  - Necrosis [Unknown]
  - Skin ulcer [Not Recovered/Not Resolved]
  - Diabetic foot infection [Recovering/Resolving]
